FAERS Safety Report 9325497 (Version 1)
Quarter: 2013Q2

REPORT INFORMATION
  Report Type: Spontaneous
  Country: US (occurrence: None)
  Receive Date: 20130528
  Receipt Date: 20130528
  Transmission Date: 20140414
  Serious: Yes (Other)
  Sender: FDA-Public Use
  Company Number: USA/USA/13/0029617

PATIENT
  Age: 37 Year
  Sex: Female

DRUGS (1)
  1. TOPOTECAN [Suspect]
     Indication: OVARIAN LOW MALIGNANT POTENTIAL TUMOUR
     Dosage: CYCLICAL

REACTIONS (10)
  - Acute febrile neutrophilic dermatosis [None]
  - Herpes zoster [None]
  - Drug dose omission [None]
  - Eye irritation [None]
  - Dermatitis [None]
  - Conjunctivitis [None]
  - Dry eye [None]
  - Vision blurred [None]
  - Diplopia [None]
  - Staphylococcus test positive [None]
